FAERS Safety Report 19045593 (Version 1)
Quarter: 2021Q1

REPORT INFORMATION
  Report Type: Report from Study
  Country: US (occurrence: US)
  Receive Date: 20210322
  Receipt Date: 20210322
  Transmission Date: 20210420
  Serious: Yes (Death)
  Sender: FDA-Public Use
  Company Number: US-SEATTLE GENETICS-2021SGN00467

PATIENT
  Age: 75 Year
  Sex: Female

DRUGS (1)
  1. TUCATINIB [Suspect]
     Active Substance: TUCATINIB
     Indication: BREAST CANCER
     Dosage: UNK
     Route: 048

REACTIONS (4)
  - Death [Fatal]
  - Diarrhoea [Unknown]
  - Nausea [Unknown]
  - Fatigue [Unknown]

NARRATIVE: CASE EVENT DATE: 20210314
